FAERS Safety Report 8345795-X (Version None)
Quarter: 2012Q2

REPORT INFORMATION
  Report Type: 
  Country: None (occurrence: None)
  Receive Date: 20120508
  Receipt Date: 20120426
  Transmission Date: 20120825
  Serious: Yes (Other)
  Sender: FDA-Public Use
  Company Number: AR-AMGEN-ARGSP2012027578

PATIENT
  Age: 5 Year
  Sex: Female

DRUGS (1)
  1. ENBREL [Suspect]
     Indication: RHEUMATOID ARTHRITIS
     Dosage: 25 MG, UNK
     Dates: start: 20070301, end: 20110701

REACTIONS (4)
  - ACTIVITIES OF DAILY LIVING IMPAIRED [None]
  - JOINT STIFFNESS [None]
  - ARTHRITIS [None]
  - JOINT WARMTH [None]
